FAERS Safety Report 21794534 (Version 1)
Quarter: 2022Q4

REPORT INFORMATION
  Report Type: Report from Study
  Country: DE (occurrence: None)
  Receive Date: 20221229
  Receipt Date: 20221229
  Transmission Date: 20230113
  Serious: Yes (Death, Other)
  Sender: FDA-Public Use
  Company Number: DE-ADIENNEP-2022AD001105

PATIENT
  Age: 64 Year
  Sex: Male

DRUGS (3)
  1. THIOTEPA [Suspect]
     Active Substance: THIOTEPA
     Indication: Autologous haematopoietic stem cell transplant
     Dosage: 2X5 MG/KG/DAY FOR 2 DAYS (DAYS 3 AND 4)
     Route: 042
  2. CARMUSTINE [Suspect]
     Active Substance: CARMUSTINE
     Indication: Autologous haematopoietic stem cell transplant
     Dosage: 400 MG/M2 (DAY 2)
     Route: 042
  3. RITUXIMAB [Suspect]
     Active Substance: RITUXIMAB
     Indication: Autologous haematopoietic stem cell transplant
     Dosage: 375 MG/M2 (DAY 1)
     Route: 042

REACTIONS (3)
  - Infection [Unknown]
  - Pneumonia [Fatal]
  - Immunodeficiency [Fatal]
